FAERS Safety Report 17117804 (Version 1)
Quarter: 2019Q4

REPORT INFORMATION
  Report Type: Report from Study
  Country: NL (occurrence: NL)
  Receive Date: 20191205
  Receipt Date: 20191205
  Transmission Date: 20200122
  Serious: Yes (Other)
  Sender: FDA-Public Use
  Company Number: NL-JNJFOC-20191142456

PATIENT
  Age: 32 Year
  Sex: Female

DRUGS (2)
  1. METHOTREXAAT                       /00113801/ [Concomitant]
     Active Substance: METHOTREXATE SODIUM
     Dates: start: 20150301, end: 20171201
  2. REMICADE [Suspect]
     Active Substance: INFLIXIMAB
     Indication: CROHN^S DISEASE
     Route: 042
     Dates: start: 20150112, end: 20160613

REACTIONS (3)
  - Loss of consciousness [Recovered/Resolved]
  - Dyspnoea [Recovered/Resolved]
  - Hypersensitivity [Recovered/Resolved]

NARRATIVE: CASE EVENT DATE: 20160613
